FAERS Safety Report 20377759 (Version 2)
Quarter: 2022Q1

REPORT INFORMATION
  Report Type: Report from Study
  Country: JP (occurrence: JP)
  Receive Date: 20220126
  Receipt Date: 20220318
  Transmission Date: 20220423
  Serious: Yes (Other)
  Sender: FDA-Public Use
  Company Number: JP-CELLTRION INC.-2021JP012712

PATIENT

DRUGS (25)
  1. INVESTIGATIONAL BIOSIMILARS [Suspect]
     Active Substance: INVESTIGATIONAL BIOSIMILARS
     Indication: HER2 positive gastric cancer
     Dosage: 530 MILLIGRAM, QD
     Route: 041
     Dates: start: 20200107, end: 20200107
  2. INVESTIGATIONAL BIOSIMILARS [Suspect]
     Active Substance: INVESTIGATIONAL BIOSIMILARS
     Dosage: 350 MILLIGRAM, QD
     Route: 041
     Dates: start: 20200207, end: 20200207
  3. INVESTIGATIONAL BIOSIMILARS [Suspect]
     Active Substance: INVESTIGATIONAL BIOSIMILARS
     Dosage: 530 MILLIGRAM, QD
     Route: 041
     Dates: start: 20200424, end: 20200424
  4. INVESTIGATIONAL BIOSIMILARS [Suspect]
     Active Substance: INVESTIGATIONAL BIOSIMILARS
     Dosage: 350 MILLIGRAM, QD
     Route: 041
     Dates: start: 20200515, end: 20200515
  5. INVESTIGATIONAL BIOSIMILARS [Suspect]
     Active Substance: INVESTIGATIONAL BIOSIMILARS
     Dosage: 350 MILLIGRAM, QD
     Route: 041
     Dates: start: 20200605, end: 20200605
  6. INVESTIGATIONAL BIOSIMILARS [Suspect]
     Active Substance: INVESTIGATIONAL BIOSIMILARS
     Dosage: 350 MILLIGRAM, QD
     Route: 041
     Dates: start: 20200626, end: 20200626
  7. OXALIPLATIN [Suspect]
     Active Substance: OXALIPLATIN
     Indication: HER2 positive gastric cancer
     Dosage: 170 MILLIGRAM, QD
     Route: 041
     Dates: start: 20200107, end: 20200107
  8. OXALIPLATIN [Suspect]
     Active Substance: OXALIPLATIN
     Dosage: 130 MILLIGRAM, QD
     Route: 041
     Dates: start: 20200207, end: 20200207
  9. OXALIPLATIN [Suspect]
     Active Substance: OXALIPLATIN
     Dosage: 130 MILLIGRAM, QD
     Route: 041
     Dates: start: 20200424, end: 20200424
  10. OXALIPLATIN [Suspect]
     Active Substance: OXALIPLATIN
     Dosage: 130 MILLIGRAM, QD
     Route: 041
     Dates: start: 20200515, end: 20200515
  11. OXALIPLATIN [Suspect]
     Active Substance: OXALIPLATIN
     Dosage: 130 MILLIGRAM, QD
     Route: 041
     Dates: start: 20200605, end: 20200605
  12. OXALIPLATIN [Suspect]
     Active Substance: OXALIPLATIN
     Dosage: 130 MILLIGRAM, QD
     Route: 041
     Dates: start: 20200626, end: 20200626
  13. CAPECITABINE [Suspect]
     Active Substance: CAPECITABINE
     Indication: HER2 positive gastric cancer
     Dosage: 1800 MILLIGRAM, QD (ON 07JAN IN THE MORNING, ON 21 JAN IN THE EVENING)
     Route: 048
     Dates: start: 20200107, end: 20200121
  14. CAPECITABINE [Suspect]
     Active Substance: CAPECITABINE
     Dosage: 1800 MILLIGRAM, QD
     Route: 048
     Dates: start: 20200207, end: 20200221
  15. CAPECITABINE [Suspect]
     Active Substance: CAPECITABINE
     Dosage: 1800 MILLIGRAM, QD
     Route: 048
     Dates: start: 20200424, end: 20200508
  16. CAPECITABINE [Suspect]
     Active Substance: CAPECITABINE
     Dosage: 1800 MILLIGRAM, QD
     Route: 048
     Dates: start: 20200515, end: 20200529
  17. CAPECITABINE [Suspect]
     Active Substance: CAPECITABINE
     Dosage: 1800 MILLIGRAM, QD
     Route: 048
     Dates: start: 20200605, end: 20200619
  18. CAPECITABINE [Suspect]
     Active Substance: CAPECITABINE
     Dosage: 1800 MILLIGRAM, QD
     Route: 048
     Dates: start: 20200626, end: 20200706
  19. DECADRON [Concomitant]
     Active Substance: DEXAMETHASONE
     Indication: Prophylaxis of nausea and vomiting
     Dosage: UNK
     Dates: start: 20200108, end: 20200629
  20. PENTOSAN POLYSULFATE SODIUM [Concomitant]
     Active Substance: PENTOSAN POLYSULFATE SODIUM
     Indication: Dry skin prophylaxis
     Dosage: UNK
     Dates: start: 20200108
  21. SILODOSIN [Concomitant]
     Active Substance: SILODOSIN
     Indication: Benign prostatic hyperplasia
     Dosage: UNK
  22. EPINASTINE HYDROCHLORIDE [Concomitant]
     Active Substance: EPINASTINE HYDROCHLORIDE
     Indication: Hepatitis C
     Dosage: UNK
  23. METOANA [Concomitant]
     Indication: Diabetes mellitus
     Dosage: UNK
  24. AMLODIPINE [Concomitant]
     Active Substance: AMLODIPINE BESYLATE
     Indication: Hypertension
     Dosage: UNK
  25. LYRICA [Concomitant]
     Active Substance: PREGABALIN
     Indication: Osteonecrosis
     Dosage: UNK

REACTIONS (6)
  - Pneumonia aspiration [Recovering/Resolving]
  - White blood cell count decreased [Recovered/Resolved]
  - Malaise [Recovered/Resolved]
  - Malaise [Not Recovered/Not Resolved]
  - Overdose [Unknown]
  - Off label use [Unknown]

NARRATIVE: CASE EVENT DATE: 20200207
